FAERS Safety Report 5141947-0 (Version None)
Quarter: 2006Q4

REPORT INFORMATION
  Report Type: 
  Country: None (occurrence: None)
  Receive Date: 20061102
  Receipt Date: 20051027
  Transmission Date: 20070319
  Serious: Yes (Hospitalization, Other)
  Sender: FDA-Public Use
  Company Number: PHEH2005US11963

PATIENT
  Age: 35 Year
  Sex: Male

DRUGS (6)
  1. DEPAKOTE [Concomitant]
     Dosage: 2000 MG, QHS
  2. KLONOPIN [Concomitant]
     Dosage: UNK
  3. RESTORIL [Concomitant]
     Dosage: UNK
  4. CLOZARIL [Suspect]
     Indication: SCHIZOAFFECTIVE DISORDER
  5. CLOZAPINE [Suspect]
  6. CLOZAPINE [Suspect]

REACTIONS (5)
  - BIPOLAR DISORDER [None]
  - DISEASE RECURRENCE [None]
  - NEUTROPHIL COUNT DECREASED [None]
  - SUICIDAL IDEATION [None]
  - WHITE BLOOD CELL COUNT DECREASED [None]
